FAERS Safety Report 12000909 (Version 2)
Quarter: 2016Q2

REPORT INFORMATION
  Report Type: Spontaneous
  Country: US (occurrence: US)
  Receive Date: 20160204
  Receipt Date: 20160425
  Transmission Date: 20160815
  Serious: Yes (Hospitalization, Other)
  Sender: FDA-Public Use
  Company Number: US-PFIZER INC-2016063005

PATIENT
  Age: 52 Year
  Sex: Male

DRUGS (10)
  1. TESTOSTERONE. [Suspect]
     Active Substance: TESTOSTERONE
     Indication: HORMONE REPLACEMENT THERAPY
  2. AXIRON [Suspect]
     Active Substance: TESTOSTERONE
     Indication: ASTHENIA
  3. TESTOSTERONE. [Suspect]
     Active Substance: TESTOSTERONE
     Indication: ASTHENIA
  4. TESTOSTERONE. [Suspect]
     Active Substance: TESTOSTERONE
     Indication: BLOOD TESTOSTERONE DECREASED
     Dosage: UNK, MONTHLY (ONCE MONTHLY)
     Dates: start: 201102, end: 201107
  5. FORTESTA [Suspect]
     Active Substance: TESTOSTERONE
     Indication: ASTHENIA
  6. AXIRON [Suspect]
     Active Substance: TESTOSTERONE
     Indication: HORMONE REPLACEMENT THERAPY
  7. FORTESTA [Suspect]
     Active Substance: TESTOSTERONE
     Indication: HORMONE REPLACEMENT THERAPY
     Dosage: UNK
     Dates: start: 20110223, end: 20130312
  8. DEPO-TESTOSTERONE [Suspect]
     Active Substance: TESTOSTERONE CYPIONATE
     Indication: HORMONE REPLACEMENT THERAPY
     Dosage: UNK
     Dates: start: 20110223, end: 20130312
  9. AXIRON [Suspect]
     Active Substance: TESTOSTERONE
     Indication: BLOOD TESTOSTERONE DECREASED
     Dosage: UNK, 1X/DAY (ONCE DAILY)
  10. FORTESTA [Suspect]
     Active Substance: TESTOSTERONE
     Indication: BLOOD TESTOSTERONE DECREASED
     Dosage: UNK, 1X/DAY (ONCE DAILY)
     Dates: start: 201107, end: 201303

REACTIONS (4)
  - Visual impairment [Not Recovered/Not Resolved]
  - Myocardial infarction [Unknown]
  - Memory impairment [Not Recovered/Not Resolved]
  - Nerve injury [Not Recovered/Not Resolved]

NARRATIVE: CASE EVENT DATE: 20130314
